FAERS Safety Report 14163849 (Version 4)
Quarter: 2018Q1

REPORT INFORMATION
  Report Type: Spontaneous
  Country: JP (occurrence: JP)
  Receive Date: 20171107
  Receipt Date: 20180228
  Transmission Date: 20180508
  Serious: Yes (Hospitalization, Other)
  Sender: FDA-Public Use
  Company Number: JP-AMGEN-JPNSP2017166156

PATIENT
  Age: 58 Year
  Sex: Female
  Weight: 38 kg

DRUGS (13)
  1. RANMARK [Suspect]
     Active Substance: DENOSUMAB
     Indication: BREAST CANCER
     Dosage: UNK, QMO
     Route: 065
     Dates: start: 20120720
  2. RANMARK [Suspect]
     Active Substance: DENOSUMAB
     Indication: METASTASES TO BONE
  3. JUZENTAIHOTO [Concomitant]
     Active Substance: HERBALS
     Dosage: 2.5 G, TID
     Route: 065
  4. LOXOPROFEN [Concomitant]
     Active Substance: LOXOPROFEN
     Dosage: 60 MG, BID
     Route: 065
  5. HERCEPTIN [Concomitant]
     Active Substance: TRASTUZUMAB
     Indication: METASTASES TO BONE
  6. SHAKUYAKUKANZOTO [Concomitant]
     Active Substance: HERBALS
     Dosage: 2.5 G, AS NECESSARY
     Route: 065
  7. NAVELBINE [Concomitant]
     Active Substance: VINORELBINE TARTRATE
     Indication: BREAST CANCER
     Dosage: UNK
     Dates: start: 201202
  8. HERCEPTIN [Concomitant]
     Active Substance: TRASTUZUMAB
     Indication: BREAST CANCER
     Dosage: UNK
  9. RANMARK [Suspect]
     Active Substance: DENOSUMAB
     Indication: METASTASES TO LUNG
  10. OXYCONTIN [Concomitant]
     Active Substance: OXYCODONE HYDROCHLORIDE
     Dosage: 5 MG, BID
     Route: 065
  11. RANMARK [Suspect]
     Active Substance: DENOSUMAB
     Indication: METASTASES TO LIVER
  12. NAVELBINE [Concomitant]
     Active Substance: VINORELBINE TARTRATE
     Indication: METASTASES TO BONE
  13. OXINORM (OXYCODONE HYDROCHLORIDE) [Concomitant]
     Active Substance: OXYCODONE HYDROCHLORIDE
     Dosage: 5 MG, AS NECESSARY
     Route: 048

REACTIONS (6)
  - Brain herniation [Not Recovered/Not Resolved]
  - Osteomyelitis [Not Recovered/Not Resolved]
  - Otitis media [Not Recovered/Not Resolved]
  - Hypocalcaemia [Recovered/Resolved]
  - Extradural abscess [Not Recovered/Not Resolved]
  - Osteonecrosis of jaw [Not Recovered/Not Resolved]

NARRATIVE: CASE EVENT DATE: 20150918
